FAERS Safety Report 4634801-1 (Version None)
Quarter: 2005Q2

REPORT INFORMATION
  Report Type: 
  Country: None (occurrence: None)
  Receive Date: 20050412
  Receipt Date: 20050412
  Transmission Date: 20051028
  Serious: Yes (Other)
  Sender: FDA-Public Use
  Company Number: None

PATIENT
  Sex: Male

DRUGS (1)
  1. VORICONAZOLE   200 MG   PFIZER [Suspect]
     Indication: ASPERGILLOSIS
     Dosage: 200 MG   TWICE DAILY  ORAL
     Route: 048
     Dates: start: 20040913, end: 20050406

REACTIONS (3)
  - NEUROPATHY [None]
  - PAIN IN EXTREMITY [None]
  - PARAESTHESIA [None]
